FAERS Safety Report 8983990 (Version 1)
Quarter: 2012Q4

REPORT INFORMATION
  Report Type: Spontaneous
  Country: US (occurrence: None)
  Receive Date: 20121218
  Receipt Date: 20121218
  Transmission Date: 20130627
  Serious: Yes (Hospitalization)
  Sender: FDA-Public Use
  Company Number: None

PATIENT
  Age: 60 Year
  Sex: Male
  Weight: 132 kg

DRUGS (1)
  1. QSYMIA [Suspect]
     Indication: MORBID OBESITY
     Dates: start: 20121101, end: 20121206

REACTIONS (2)
  - Atrial fibrillation [None]
  - Cardiac failure congestive [None]
